FAERS Safety Report 7648053-1 (Version None)
Quarter: 2011Q3

REPORT INFORMATION
  Report Type: 
  Country: None (occurrence: None)
  Receive Date: 20110726
  Receipt Date: 20110715
  Transmission Date: 20111222
  Serious: Yes (Life-Threatening, Hospitalization)
  Sender: FDA-Public Use
  Company Number: 982912

PATIENT
  Age: 57 Year
  Sex: Male

DRUGS (10)
  1. DEXAMETHASONE [Suspect]
     Indication: PROPHYLAXIS
     Dosage: 8 MG MILLIGRAM(S), INTRAVENOUS (NOT OTHERWISE SPECIFIED)
     Route: 042
  2. LEVOBUPIVACAINE [Suspect]
     Indication: NERVE BLOCK
     Dosage: 150 MG MILLIGRAMS(S),
     Dates: start: 20110620
  3. PREDNISOLONE [Concomitant]
  4. CHLORHEXIDINE GLUCONATE [Suspect]
     Indication: PRODUCT USED FOR UNKNOWN INDICATION
     Dosage: TOPICAL
     Route: 061
     Dates: start: 20110620
  5. TEICOPLANIN [Suspect]
     Indication: PROPHYLAXIS
     Dosage: 400 MG MILLIGRAMS(S), INTRAVENOUS (NOT OTHERWISE SPECIFIED)
     Route: 042
     Dates: start: 20110620
  6. VENTOLIN [Concomitant]
  7. GENTAMICIN SULFATE [Suspect]
     Indication: PROPHYLAXIS
     Dosage: 120 MG MILLIGRAM(S), INTRAVENOUS (NOT OTHERWISE SPECIFIED)
     Route: 042
  8. FENTANYL [Suspect]
     Indication: PRODUCT USED FOR UNKNOWN INDICATION
     Dosage: 1 MG MILLIGRAM(S), INTRAVENOUS (NOT OTHERWISE SPECIFIED)
     Route: 042
     Dates: start: 20110620
  9. PROPOFOL [Suspect]
     Indication: PRODUCT USED FOR UNKNOWN INDICATION
     Dosage: 200 MG MILLIGRAM(S), INTRAVENOUS (NOT OTHERWISE SPECIFIED)
     Dates: start: 20110620
  10. LANSOPRAZOLE [Concomitant]

REACTIONS (1)
  - ANAPHYLACTIC REACTION [None]
